FAERS Safety Report 9832098 (Version 6)
Quarter: 2015Q1

REPORT INFORMATION
  Report Type: Report from Study
  Country: FR (occurrence: FR)
  Receive Date: 20140121
  Receipt Date: 20150330
  Transmission Date: 20150721
  Serious: Yes (Hospitalization, Other)
  Sender: FDA-Public Use
  Company Number: PHHY2014FR006190

PATIENT
  Age: 83 Year
  Sex: Male
  Weight: 81 kg

DRUGS (13)
  1. LEVEMIR [Concomitant]
     Active Substance: INSULIN DETEMIR
     Indication: TYPE 1 DIABETES MELLITUS
     Dosage: UNK
     Route: 065
  2. ESOMEPRAZOLE [Concomitant]
     Active Substance: ESOMEPRAZOLE
     Indication: PRODUCT USED FOR UNKNOWN INDICATION
     Dosage: 20 MG, QD
     Route: 065
  3. AMN107 [Suspect]
     Active Substance: NILOTINIB
     Indication: CHRONIC MYELOID LEUKAEMIA
     Dosage: 300 MG, QD
     Route: 048
     Dates: start: 20130322, end: 20130429
  4. AMN107 [Suspect]
     Active Substance: NILOTINIB
     Dosage: 300 MG, QD
     Route: 048
     Dates: start: 20130622
  5. LASILIX [Concomitant]
     Active Substance: FUROSEMIDE
     Indication: PRODUCT USED FOR UNKNOWN INDICATION
     Dosage: 40 MG, QD
     Route: 065
  6. FOLIC ACID. [Concomitant]
     Active Substance: FOLIC ACID
     Indication: FOLATE DEFICIENCY
     Dosage: 5 MG, QD
     Route: 065
     Dates: start: 20130621
  7. APIDRA [Concomitant]
     Active Substance: INSULIN GLULISINE
     Indication: TYPE 1 DIABETES MELLITUS
     Dosage: UNK
     Route: 065
  8. AMN107 [Suspect]
     Active Substance: NILOTINIB
     Dosage: 400 MG, QD
     Route: 048
     Dates: start: 20130513, end: 20130620
  9. AMLODIPINE [Concomitant]
     Active Substance: AMLODIPINE BESYLATE
     Indication: HYPERTENSION
     Dosage: 5 MG, QD
     Route: 065
  10. INDAPAMIDE. [Concomitant]
     Active Substance: INDAPAMIDE
     Indication: CORONARY ARTERY INSUFFICIENCY
     Dosage: 1.5 MG, QD
     Route: 065
  11. BISOPROLOL [Concomitant]
     Active Substance: BISOPROLOL
     Indication: CORONARY ARTERY INSUFFICIENCY
     Dosage: 2.5 MG, QD
     Route: 065
  12. KARDEGIC [Concomitant]
     Active Substance: ASPIRIN LYSINE
     Indication: CORONARY ARTERY INSUFFICIENCY
     Dosage: 75 MG, QD
     Route: 065
  13. PRAVASTATIN [Concomitant]
     Active Substance: PRAVASTATIN\PRAVASTATIN SODIUM
     Indication: DYSLIPIDAEMIA
     Dosage: 40 MG, QD
     Route: 065

REACTIONS (5)
  - Fistula [Recovering/Resolving]
  - Diabetic foot [Recovering/Resolving]
  - Diabetes mellitus [Not Recovered/Not Resolved]
  - Abscess limb [Recovering/Resolving]
  - Osteitis [Unknown]

NARRATIVE: CASE EVENT DATE: 20130502
